FAERS Safety Report 21399367 (Version 1)
Quarter: 2022Q4

REPORT INFORMATION
  Report Type: Spontaneous
  Country: US (occurrence: US)
  Receive Date: 20221001
  Receipt Date: 20221001
  Transmission Date: 20230113
  Serious: Yes (Hospitalization)
  Sender: FDA-Public Use
  Company Number: US-drreddys-LIT/USA/22/0155122

PATIENT
  Sex: Female

DRUGS (9)
  1. AMIODARONE HYDROCHLORIDE [Suspect]
     Active Substance: AMIODARONE HYDROCHLORIDE
     Indication: Atrial tachycardia
  2. AMIODARONE HYDROCHLORIDE [Suspect]
     Active Substance: AMIODARONE HYDROCHLORIDE
     Dosage: CONTINUOUS INFUSION
  3. AMIODARONE HYDROCHLORIDE [Suspect]
     Active Substance: AMIODARONE HYDROCHLORIDE
     Dosage: CONTINUOUS INFUSION
  4. IVABRADINE [Suspect]
     Active Substance: IVABRADINE
     Indication: Atrial tachycardia
     Dosage: 0.05 MG/KG/DOSE (0.22 MG/DOSE) TWICE A DAY ON DAY 5 OF LIFE
  5. IVABRADINE [Suspect]
     Active Substance: IVABRADINE
     Dosage: SECOND DOSE
  6. IVABRADINE [Suspect]
     Active Substance: IVABRADINE
     Dosage: 2.2MG (0.5 MG/KG) (OVERDOSE) INSTEAD OF THE INTENDED DOSE OF 0.22MG (0.05 MG/KG) DUE TO DOSING ERROR
  7. PROCAINAMIDE HYDROCHLORIDE [Concomitant]
     Active Substance: PROCAINAMIDE HYDROCHLORIDE
     Indication: Atrial tachycardia
     Dosage: 50 MICROG/KG/MIN
  8. ESMOLOL [Concomitant]
     Active Substance: ESMOLOL HYDROCHLORIDE
     Indication: Atrial tachycardia
     Dosage: HIGH DOSE
  9. ADENOSINE [Concomitant]
     Active Substance: ADENOSINE
     Indication: Atrial tachycardia

REACTIONS (3)
  - Neonatal sinus bradycardia [Unknown]
  - Treatment failure [Unknown]
  - Product use in unapproved indication [Unknown]
